FAERS Safety Report 16079615 (Version 1)
Quarter: 2019Q1

REPORT INFORMATION
  Report Type: Spontaneous
  Country: None (occurrence: CA)
  Receive Date: 20190315
  Receipt Date: 20190315
  Transmission Date: 20190418
  Serious: Yes (Life-Threatening, Hospitalization, Other)
  Sender: FDA-Public Use
  Company Number: CA-ASCEND THERAPEUTICS-2064080

PATIENT
  Age: 57 Year
  Sex: Female

DRUGS (2)
  1. ESTROGEL [Suspect]
     Active Substance: ESTRADIOL
     Route: 062
  2. PROMETRIUM [Suspect]
     Active Substance: PROGESTERONE

REACTIONS (1)
  - Endometrial adenocarcinoma [Recovering/Resolving]
